FAERS Safety Report 9184978 (Version 3)
Quarter: 2013Q2

REPORT INFORMATION
  Report Type: Report from Study
  Country: CA (occurrence: CA)
  Receive Date: 20130325
  Receipt Date: 20130408
  Transmission Date: 20140414
  Serious: Yes (Other)
  Sender: FDA-Public Use
  Company Number: CA-ROCHE-1205022

PATIENT
  Sex: Female

DRUGS (5)
  1. XELODA [Suspect]
     Indication: NEUROENDOCRINE CARCINOMA
     Route: 048
     Dates: start: 200809, end: 200907
  2. XELODA [Suspect]
     Indication: OFF LABEL USE
     Route: 048
     Dates: start: 201101, end: 201111
  3. XELODA [Suspect]
     Route: 065
     Dates: start: 20130323
  4. SYNTHROID [Concomitant]
  5. SANDOSTATIN [Concomitant]

REACTIONS (3)
  - Disease progression [Unknown]
  - Recurrent cancer [Unknown]
  - Metastatic neoplasm [Not Recovered/Not Resolved]
